FAERS Safety Report 15859790 (Version 3)
Quarter: 2019Q1

REPORT INFORMATION
  Report Type: Report from Study
  Country: DE (occurrence: DE)
  Receive Date: 20190123
  Receipt Date: 20190312
  Transmission Date: 20190417
  Serious: Yes (Hospitalization)
  Sender: FDA-Public Use
  Company Number: DE-ALEXION-A201817117

PATIENT
  Age: 54 Year
  Sex: Female
  Weight: 51 kg

DRUGS (14)
  1. ECULIZUMAB [Suspect]
     Active Substance: ECULIZUMAB
     Dosage: 240 MG, UNK
     Route: 042
     Dates: start: 20181220, end: 20181220
  2. ECULIZUMAB [Suspect]
     Active Substance: ECULIZUMAB
     Dosage: UNK
     Route: 065
     Dates: start: 20190110
  3. ECULIZUMAB [Suspect]
     Active Substance: ECULIZUMAB
     Indication: NEUROMYELITIS OPTICA SPECTRUM DISORDER
     Dosage: 240 ML, UNK
     Route: 042
     Dates: start: 20180621, end: 20180621
  4. CITALOPRAM [Concomitant]
     Active Substance: CITALOPRAM HYDROBROMIDE
     Indication: PERSISTENT DEPRESSIVE DISORDER
     Dosage: 15 MG, QD
     Route: 048
     Dates: start: 20171001
  5. L-THYROXIN [Concomitant]
     Active Substance: LEVOTHYROXINE SODIUM
     Indication: HYPOTHYROIDISM
     Dosage: 50 ?G, QD
     Route: 048
     Dates: start: 2006
  6. ECULIZUMAB [Suspect]
     Active Substance: ECULIZUMAB
     Dosage: 1200 MG, UNK
     Route: 065
     Dates: start: 20181220
  7. ECULIZUMAB [Suspect]
     Active Substance: ECULIZUMAB
     Dosage: 240 ML, UNK
     Route: 042
     Dates: start: 20190124
  8. MOVICOL [Concomitant]
     Active Substance: POLYETHYLENE GLYCOL 3350\POTASSIUM CHLORIDE\SODIUM BICARBONATE\SODIUM CHLORIDE
     Indication: CONSTIPATION
     Dosage: 1 SACHET, PRN
     Route: 048
     Dates: start: 201409
  9. MAGNESIUM DIASPORAL                /00434501/ [Concomitant]
     Indication: MUSCLE TIGHTNESS
     Dosage: 1 SACHET, QD
     Route: 048
     Dates: start: 201407, end: 20180824
  10. MAGNESIUM DIASPORAL                /00434501/ [Concomitant]
     Indication: TONIC CONVULSION
     Dosage: 400 MG, QD
     Route: 048
     Dates: start: 20180825
  11. DOLORMIN                           /00109201/ [Concomitant]
     Active Substance: IBUPROFEN
     Indication: NASOPHARYNGITIS
     Dosage: 400 MG, PRN
     Route: 048
     Dates: start: 20181128, end: 20181203
  12. ECULIZUMAB [Suspect]
     Active Substance: ECULIZUMAB
     Dosage: 240 ML, UNK
     Route: 042
     Dates: start: 20190207
  13. ECULIZUMAB [Suspect]
     Active Substance: ECULIZUMAB
     Dosage: 240 ML, UNK
     Route: 042
     Dates: start: 20181206, end: 20181206
  14. SOLEDUM [Concomitant]
     Active Substance: EUCALYPTOL
     Indication: NASOPHARYNGITIS
     Dosage: 200 MG, TID
     Route: 048
     Dates: start: 20181128, end: 20190106

REACTIONS (1)
  - Streptococcal infection [Recovered/Resolved]

NARRATIVE: CASE EVENT DATE: 20181222
